FAERS Safety Report 23078942 (Version 1)
Quarter: 2023Q4

REPORT INFORMATION
  Report Type: Spontaneous
  Country: US (occurrence: US)
  Receive Date: 20231018
  Receipt Date: 20231018
  Transmission Date: 20240109
  Serious: No
  Sender: FDA-Public Use
  Company Number: US-OPELLA-2023OHG007386

PATIENT

DRUGS (1)
  1. GOLD BOND ORIGINAL STRENGTH LOTION [Suspect]
     Active Substance: DIMETHICONE\MENTHOL
     Indication: Product used for unknown indication

REACTIONS (1)
  - Rash [Unknown]
